FAERS Safety Report 13177194 (Version 2)
Quarter: 2017Q3

REPORT INFORMATION
  Report Type: Report from Study
  Country: US (occurrence: US)
  Receive Date: 20170201
  Receipt Date: 20170731
  Transmission Date: 20171127
  Serious: No
  Sender: FDA-Public Use
  Company Number: US-EXELIXIS-CABO-16007359

PATIENT
  Sex: Female

DRUGS (7)
  1. DULOXETINE. [Concomitant]
     Active Substance: DULOXETINE
  2. LAMPUS [Concomitant]
  3. ATORVASTIN [Concomitant]
     Active Substance: ATORVASTATIN
  4. APIDRA [Concomitant]
     Active Substance: INSULIN GLULISINE
  5. LEVOTHYROXINE. [Concomitant]
     Active Substance: LEVOTHYROXINE
  6. POTASIUM M [Concomitant]
     Active Substance: POTASSIUM
  7. CABOMETYX [Suspect]
     Active Substance: CABOZANTINIB S-MALATE
     Indication: RENAL CANCER
     Dosage: 60 MG, QD
     Route: 048

REACTIONS (2)
  - Fatigue [Not Recovered/Not Resolved]
  - Hypersomnia [Unknown]
